FAERS Safety Report 11324122 (Version 1)
Quarter: 2015Q3

REPORT INFORMATION
  Report Type: Spontaneous
  Country: US (occurrence: US)
  Receive Date: 20150730
  Receipt Date: 20150730
  Transmission Date: 20151125
  Serious: No
  Sender: FDA-Public Use
  Company Number: US-ENDO PHARMACEUTICALS INC.-ALLO20140019

PATIENT
  Sex: Male

DRUGS (2)
  1. ALLOPURINOL TABLETS 300MG [Suspect]
     Active Substance: ALLOPURINOL
     Indication: PRODUCT USED FOR UNKNOWN INDICATION
     Dosage: UNKNOWN
     Route: 048
     Dates: end: 2014
  2. ALLOPURINOL TABLETS 300MG [Suspect]
     Active Substance: ALLOPURINOL
     Dosage: INCREASED
     Route: 048
     Dates: start: 2014

REACTIONS (1)
  - Drug effect decreased [Not Recovered/Not Resolved]

NARRATIVE: CASE EVENT DATE: 2014
